FAERS Safety Report 6608767-9 (Version None)
Quarter: 2010Q1

REPORT INFORMATION
  Report Type: 
  Country: None (occurrence: None)
  Receive Date: 20100224
  Receipt Date: 20100224
  Transmission Date: 20100710
  Serious: No
  Sender: FDA-Public Use
  Company Number: None

PATIENT
  Age: 61 Year
  Sex: Male
  Weight: 74.8435 kg

DRUGS (6)
  1. HALOPERIDOL [Suspect]
     Dosage: 5 MG PO
     Route: 048
     Dates: start: 20081226, end: 20081230
  2. ATENOLOL [Concomitant]
  3. MIRALAX [Concomitant]
  4. RISPERDAL [Concomitant]
  5. QUETIAPINE [Concomitant]
  6. BENZTROPINE MESYLATE [Concomitant]

REACTIONS (1)
  - URTICARIA [None]
